FAERS Safety Report 5864368-1 (Version None)
Quarter: 2008Q3

REPORT INFORMATION
  Report Type: 
  Country: None (occurrence: None)
  Receive Date: 20080829
  Receipt Date: 20080623
  Transmission Date: 20090109
  Serious: No
  Sender: FDA-Public Use
  Company Number: US-ABBOTT-08P-163-0458848-00

PATIENT
  Sex: Female
  Weight: 100.79 kg

DRUGS (24)
  1. SIMCOR [Suspect]
     Indication: BLOOD CHOLESTEROL INCREASED
     Route: 048
     Dates: start: 20080501
  2. MEXILETINE HYDROCHLORIDE [Concomitant]
     Indication: NERVE INJURY
     Route: 048
  3. CARBAMAZEPINE [Concomitant]
     Indication: CONVULSION
     Route: 048
  4. CLONAZEPAM [Concomitant]
     Indication: DRUG USE FOR UNKNOWN INDICATION
     Route: 048
  5. BACLOFEN [Concomitant]
     Indication: DRUG USE FOR UNKNOWN INDICATION
     Route: 048
  6. BETHANECHOL CHLORIDE [Concomitant]
     Indication: DRUG USE FOR UNKNOWN INDICATION
     Route: 048
  7. SERTRALINE [Concomitant]
     Indication: DEPRESSION
     Route: 048
  8. ALLOPURINOL [Concomitant]
     Indication: DEPRESSION
     Route: 048
  9. TIZANIDINE HYDROCHLORIDE [Concomitant]
     Indication: PAIN
     Route: 048
  10. VICODIN [Concomitant]
     Indication: PAIN
     Dosage: 10/325MG 4 TIMES A DAY, AS NEEDED
     Route: 048
  11. HYDROMORPHONE HYDROCHLORIDE [Concomitant]
     Indication: PAIN
     Dosage: 4MG 4 TIMES A DAY AS NEEDED
     Route: 048
  12. LORAZEPAM [Concomitant]
     Indication: DEPRESSION
     Route: 048
  13. LANSOPRAZOLE [Concomitant]
     Indication: DRUG USE FOR UNKNOWN INDICATION
     Route: 048
  14. LAMOTRIGINE [Concomitant]
     Indication: DRUG USE FOR UNKNOWN INDICATION
  15. ANTIVERT [Concomitant]
     Indication: VERTIGO
     Route: 048
  16. HYDROXYZINE HYDROCHLORIDE [Concomitant]
     Indication: VERTIGO
     Route: 048
  17. LEVOTHYROXINE SODIUM [Concomitant]
     Indication: HYPOTHYROIDISM
     Route: 048
  18. PETHIDINE HYDROCHLORIDE [Concomitant]
     Indication: PAIN
     Route: 048
  19. ERGOCALCIFEROL [Concomitant]
     Indication: VITAMIN SUPPLEMENTATION
  20. ALENDRONATE SODIUM [Concomitant]
     Indication: OSTEOPOROSIS
     Route: 048
  21. CALCITRIOL [Concomitant]
     Indication: OSTEOPOROSIS
     Route: 048
  22. TEMAZEPAM [Concomitant]
     Indication: INSOMNIA
     Dosage: 30MG ONCE AT NIGHT, AS NEEDED
     Route: 048
  23. PROPRANOLOL [Concomitant]
     Indication: MIGRAINE
     Route: 048
  24. ROBAXIN [Concomitant]
     Indication: DRUG USE FOR UNKNOWN INDICATION
     Dosage: 750MG TWICE A DAY, AS NEEDED
     Route: 048

REACTIONS (2)
  - BURNING SENSATION [None]
  - PRURITUS [None]
